FAERS Safety Report 8220384-6 (Version None)
Quarter: 2012Q1

REPORT INFORMATION
  Report Type: 
  Country: None (occurrence: None)
  Receive Date: 20120320
  Receipt Date: 20120309
  Transmission Date: 20120608
  Serious: Yes (Other)
  Sender: FDA-Public Use
  Company Number: US-SANOFI-AVENTIS-2012SA012792

PATIENT
  Age: 50 Year
  Sex: Male
  Weight: 72.73 kg

DRUGS (6)
  1. ATORVASTATIN [Concomitant]
     Dates: start: 20120110
  2. HUMALOG [Concomitant]
     Dosage: 10 UNITS BEFORE LUNCH AND DINNER DOSE:10 UNIT(S)
     Dates: start: 20120110
  3. LOPRESSOR [Concomitant]
     Dates: start: 20120110
  4. LISINOPRIL [Concomitant]
     Dates: start: 20120110
  5. GLYBURIDE [Concomitant]
  6. LANTUS [Suspect]
     Dosage: DOSE:20 UNIT(S)
     Route: 058
     Dates: start: 20120110

REACTIONS (1)
  - CEREBROVASCULAR ACCIDENT [None]
